FAERS Safety Report 21531401 (Version 2)
Quarter: 2022Q4

REPORT INFORMATION
  Report Type: Spontaneous
  Country: IT (occurrence: IT)
  Receive Date: 20221031
  Receipt Date: 20221109
  Transmission Date: 20230113
  Serious: Yes (Other)
  Sender: FDA-Public Use
  Company Number: IT-GILEAD-2022-0603204

PATIENT
  Age: 62 Year
  Sex: Male

DRUGS (1)
  1. TECARTUS [Suspect]
     Active Substance: BREXUCABTAGENE AUTOLEUCEL
     Indication: Lymphoma
     Dosage: UNK
     Route: 042
     Dates: start: 20220725, end: 20220725

REACTIONS (1)
  - Pancytopenia [Recovering/Resolving]
